FAERS Safety Report 18583973 (Version 1)
Quarter: 2020Q4

REPORT INFORMATION
  Report Type: Spontaneous
  Country: PG (occurrence: PG)
  Receive Date: 20201207
  Receipt Date: 20201207
  Transmission Date: 20210114
  Serious: Yes (Other)
  Sender: FDA-Public Use
  Company Number: PG-LUPIN PHARMACEUTICALS INC.-2020-09800

PATIENT
  Age: 25 Year
  Sex: Male

DRUGS (7)
  1. PZA [Concomitant]
     Active Substance: PYRAZINAMIDE
     Indication: TUBERCULOSIS
     Dosage: 1500 MILLIGRAM, UNK
     Route: 065
  2. PYRIDOXINE [Concomitant]
     Active Substance: PYRIDOXINE
     Indication: PROPHYLAXIS
     Dosage: 100 MILLIGRAM, UNK
     Route: 065
  3. LEVOFLOXACIN. [Suspect]
     Active Substance: LEVOFLOXACIN
     Indication: TUBERCULOSIS
     Dosage: 750 MILLIGRAM, QD
     Route: 065
  4. LINEZOLID. [Suspect]
     Active Substance: LINEZOLID
     Indication: TUBERCULOSIS
     Dosage: 600 MILLIGRAM, UNK
     Route: 065
  5. CYCLOSERINE. [Suspect]
     Active Substance: CYCLOSERINE
     Indication: TUBERCULOSIS
     Dosage: 500 MILLIGRAM, UNK
     Route: 065
  6. KANAMYCIN [Concomitant]
     Active Substance: KANAMYCIN A SULFATE
     Indication: TUBERCULOSIS
     Dosage: 600 MILLIGRAM, UNK
     Route: 065
  7. CLOFAZIMINE [Suspect]
     Active Substance: CLOFAZIMINE
     Indication: TUBERCULOSIS
     Dosage: 100 MILLIGRAM, UNK
     Route: 065

REACTIONS (4)
  - Unmasking of previously unidentified disease [Recovering/Resolving]
  - Type 1 lepra reaction [Recovering/Resolving]
  - Neuropathy peripheral [Recovering/Resolving]
  - Leprosy [Recovering/Resolving]
